FAERS Safety Report 4986427-8 (Version None)
Quarter: 2006Q2

REPORT INFORMATION
  Report Type: 
  Country: None (occurrence: None)
  Receive Date: 20060424
  Receipt Date: 20060407
  Transmission Date: 20061013
  Serious: Yes (Hospitalization)
  Sender: FDA-Public Use
  Company Number: FACT0600206

PATIENT
  Age: 80 Year
  Sex: Female

DRUGS (4)
  1. FACTIVE [Suspect]
     Indication: RESPIRATORY TRACT INFECTION BACTERIAL
     Dosage: 320 MG, QD, ORAL
     Route: 048
     Dates: start: 20060327, end: 20060402
  2. ROBITUSSIN (GUAIFENESIN) [Suspect]
     Indication: COUGH
     Dosage: ORAL
     Route: 048
     Dates: start: 20060327
  3. SYNTHROID [Concomitant]
  4. HYDROCODONE COMPOUND (HOMATROPINE METHYLBROMIDE, HYDROCODONE BITARTRAT [Concomitant]

REACTIONS (14)
  - BLOOD CREATINE INCREASED [None]
  - BLOOD GLUCOSE INCREASED [None]
  - BLOOD SODIUM DECREASED [None]
  - BLOOD UREA INCREASED [None]
  - DEHYDRATION [None]
  - DERMATITIS ALLERGIC [None]
  - EMOTIONAL DISTRESS [None]
  - FATIGUE [None]
  - NAUSEA [None]
  - NEUTROPHIL PERCENTAGE INCREASED [None]
  - RASH MORBILLIFORM [None]
  - TACHYCARDIA [None]
  - VOMITING [None]
  - WHITE BLOOD CELL COUNT INCREASED [None]
